FAERS Safety Report 11761185 (Version 1)
Quarter: 2015Q4

REPORT INFORMATION
  Report Type: Spontaneous
  Country: US (occurrence: US)
  Receive Date: 20151120
  Receipt Date: 20151120
  Transmission Date: 20160304
  Serious: No
  Sender: FDA-Public Use
  Company Number: US-ELI_LILLY_AND_COMPANY-US201209006319

PATIENT
  Age: 71 Year
  Sex: Female

DRUGS (2)
  1. FORTEO [Suspect]
     Active Substance: TERIPARATIDE
     Indication: OSTEOPOROSIS
     Dosage: 20 UG, QD
     Dates: start: 20120914
  2. FORTEO [Suspect]
     Active Substance: TERIPARATIDE
     Dosage: 20 UG, QD

REACTIONS (8)
  - Asthenia [Recovered/Resolved]
  - Dizziness [Recovering/Resolving]
  - Weight decreased [Unknown]
  - Constipation [Unknown]
  - Weight increased [Recovering/Resolving]
  - Fatigue [Recovered/Resolved]
  - Hunger [Recovering/Resolving]
  - Dizziness postural [Recovering/Resolving]

NARRATIVE: CASE EVENT DATE: 201209
